FAERS Safety Report 22651936 (Version 1)
Quarter: 2023Q2

REPORT INFORMATION
  Report Type: Spontaneous
  Country: US (occurrence: US)
  Receive Date: 20230628
  Receipt Date: 20230628
  Transmission Date: 20230721
  Serious: Yes (Other)
  Sender: FDA-Public Use
  Company Number: US-PFIZER INC-PV202300113050

PATIENT
  Age: 70 Year
  Sex: Female

DRUGS (3)
  1. IBRANCE [Suspect]
     Active Substance: PALBOCICLIB
     Indication: Breast cancer female
     Dosage: 125 MG, CYCLIC DAILY FOR 21 DAYS FOLLOWING BY 7 DAYS REST
     Route: 048
     Dates: start: 20230412
  2. IBRANCE [Suspect]
     Active Substance: PALBOCICLIB
     Dosage: 100 MG, CYCLIC 21 DAYS ON 7 DAYS OFF
     Route: 048
     Dates: start: 20230601, end: 20230621
  3. IBRANCE [Suspect]
     Active Substance: PALBOCICLIB
     Dosage: 75 MG, CYCLIC DAILY ON DAYS 1-21, FOLLOWED BY 7 DAYS REST
     Route: 048

REACTIONS (1)
  - Neutropenia [Unknown]
